FAERS Safety Report 4328087-5 (Version None)
Quarter: 2004Q1

REPORT INFORMATION
  Report Type: 
  Country: None (occurrence: None)
  Receive Date: 20040331
  Receipt Date: 20040324
  Transmission Date: 20041129
  Serious: Yes (Hospitalization)
  Sender: FDA-Public Use
  Company Number: BR-ROCHE-362934

PATIENT
  Age: 20 Year
  Sex: Male

DRUGS (1)
  1. ACCUTANE [Suspect]
     Indication: ACNE
     Route: 048

REACTIONS (1)
  - DYSPNOEA [None]
